FAERS Safety Report 10120879 (Version 1)
Quarter: 2014Q2

REPORT INFORMATION
  Report Type: Spontaneous
  Country: IT (occurrence: IT)
  Receive Date: 20140425
  Receipt Date: 20140425
  Transmission Date: 20141212
  Serious: Yes (Hospitalization)
  Sender: FDA-Public Use
  Company Number: IT-BRISTOL-MYERS SQUIBB COMPANY-20633186

PATIENT
  Age: 74 Year
  Sex: Male

DRUGS (7)
  1. METFORMIN HCL [Suspect]
     Indication: DIABETES MELLITUS
     Dosage: 1 DOSAGE UNIT DAILY ?04MAR14:6.93 MG/L,05MAR14:14.79 MG/L,06MAR14:8.01 MG/L,07MAR14:3.94 MG/L.
     Route: 048
     Dates: start: 20090301, end: 20090301
  2. GLICLAZIDE [Concomitant]
     Indication: DIABETES MELLITUS
     Route: 048
  3. VILDAGLIPTIN [Concomitant]
     Indication: DIABETES MELLITUS
     Dosage: 2 DOSAGE UNITS
     Route: 048
  4. PIOGLITAZONE HCL [Concomitant]
     Indication: DIABETES MELLITUS
     Dosage: DOSAGE UNIT 1
     Route: 048
  5. RISPERIDONE [Concomitant]
     Route: 048
  6. OLANZAPINE [Concomitant]
  7. SERTRALINE HCL [Concomitant]
     Route: 048

REACTIONS (6)
  - Hypoglycaemia [Recovering/Resolving]
  - Hypotension [Recovering/Resolving]
  - Metabolic acidosis [Recovering/Resolving]
  - Renal failure acute [Recovering/Resolving]
  - Somnolence [Recovering/Resolving]
  - Drug level increased [Recovering/Resolving]
